FAERS Safety Report 11969602 (Version 1)
Quarter: 2016Q1

REPORT INFORMATION
  Report Type: Spontaneous
  Country: GB (occurrence: GB)
  Receive Date: 20160128
  Receipt Date: 20160128
  Transmission Date: 20160526
  Serious: Yes (Other)
  Sender: FDA-Public Use
  Company Number: GB-BAYER-2016-009746

PATIENT
  Age: 59 Year
  Sex: Male
  Weight: 71.66 kg

DRUGS (1)
  1. CIPROFLOXACIN. [Suspect]
     Active Substance: CIPROFLOXACIN
     Indication: PROSTATITIS
     Dosage: 500 MG, UNK
     Route: 048
     Dates: start: 20151207, end: 20151221

REACTIONS (2)
  - Muscle spasms [Not Recovered/Not Resolved]
  - Tendon discomfort [Not Recovered/Not Resolved]

NARRATIVE: CASE EVENT DATE: 20151214
